FAERS Safety Report 11263667 (Version 1)
Quarter: 2015Q3

REPORT INFORMATION
  Report Type: Report from Study
  Country: US (occurrence: US)
  Receive Date: 20150713
  Receipt Date: 20150713
  Transmission Date: 20151125
  Serious: Yes (Death)
  Sender: FDA-Public Use
  Company Number: US-ROCHE-1543297

PATIENT
  Age: 63 Year
  Sex: Female

DRUGS (7)
  1. XELODA [Suspect]
     Active Substance: CAPECITABINE
     Indication: MALIGNANT NEOPLASM OF SPINAL CORD
  2. XELODA [Suspect]
     Active Substance: CAPECITABINE
     Indication: HEPATIC CANCER
  3. LANTUS [Concomitant]
     Active Substance: INSULIN GLARGINE
     Indication: DIABETES MELLITUS
  4. XELODA [Suspect]
     Active Substance: CAPECITABINE
     Indication: BONE CANCER
     Dosage: 14 DAYS ON/ 7 DAYS OFF
     Route: 048
  5. XELODA [Suspect]
     Active Substance: CAPECITABINE
     Indication: NEOPLASM MALIGNANT
  6. XELODA [Suspect]
     Active Substance: CAPECITABINE
     Indication: BRAIN NEOPLASM MALIGNANT
  7. XELODA [Suspect]
     Active Substance: CAPECITABINE
     Indication: BREAST CANCER
     Dosage: 4 TAB 2X DAY FOR 14 DAYS ON AND OFF 7 DAYS
     Route: 048
     Dates: start: 20141212, end: 20150310

REACTIONS (4)
  - Hypersomnia [Recovering/Resolving]
  - Fatigue [Recovering/Resolving]
  - Skin fissures [Unknown]
  - Death [Fatal]

NARRATIVE: CASE EVENT DATE: 201507
